FAERS Safety Report 14685783 (Version 4)
Quarter: 2020Q2

REPORT INFORMATION
  Report Type: Spontaneous
  Country: IT (occurrence: IT)
  Receive Date: 20180327
  Receipt Date: 20200520
  Transmission Date: 20200713
  Serious: Yes (Death, Hospitalization, Other)
  Sender: FDA-Public Use
  Company Number: IT-SA-2018SA078742

PATIENT
  Age: 76 Year
  Sex: Male
  Weight: 47 kg

DRUGS (19)
  1. KCL-RETARD [Concomitant]
     Active Substance: POTASSIUM CHLORIDE
     Dosage: 600 MG,QD
     Route: 048
  2. YOVIS [Concomitant]
     Dosage: UNK UNK,UNK
     Route: 065
  3. MYCOSTATIN [Concomitant]
     Active Substance: NYSTATIN
     Dosage: UNK UNK,UNK
     Route: 065
  4. ATORVASTATIN [Concomitant]
     Active Substance: ATORVASTATIN
     Dosage: 40 MG,QD
     Route: 048
  5. AMLODIPINE [Concomitant]
     Active Substance: AMLODIPINE BESYLATE
     Dosage: 10 MG,QD
     Route: 048
  6. VANCOMYCIN [Suspect]
     Active Substance: VANCOMYCIN
     Indication: PNEUMONITIS
     Dosage: UNK UNK,UNK
     Route: 065
     Dates: start: 20180212, end: 20180212
  7. BECLOMETASONE DIPROPIONATE [Concomitant]
     Active Substance: BECLOMETHASONE DIPROPIONATE
     Dosage: UNK UNK,UNK
     Route: 055
  8. PLAVIX [Concomitant]
     Active Substance: CLOPIDOGREL BISULFATE
     Dosage: UNK UNK,UNK
     Route: 048
  9. HUMALOG [Concomitant]
     Active Substance: INSULIN LISPRO
     Indication: DIABETES MELLITUS
     Dosage: 24 IU,QD
     Route: 058
  10. ACETYLSALICYLIC ACID [Concomitant]
     Active Substance: ASPIRIN
     Dosage: 100 MG,QD
     Route: 048
  11. BREVA [Concomitant]
     Active Substance: ALBUTEROL\IPRATROPIUM
     Dosage: UNK UNK,UNK
     Route: 055
  12. LANTUS [Concomitant]
     Active Substance: INSULIN GLARGINE
     Indication: DIABETES MELLITUS
     Dosage: 12 IU,QD
     Route: 058
  13. GENTAMICIN SULFATE. [Suspect]
     Active Substance: GENTAMICIN SULFATE
     Indication: PNEUMONITIS
     Dosage: UNK UNK,UNK
     Route: 065
     Dates: start: 20180212, end: 20180225
  14. RIFAMPICIN [Suspect]
     Active Substance: RIFAMPIN
     Indication: PNEUMONITIS
     Dosage: UNK UNK,UNK
     Route: 065
     Dates: start: 20180212, end: 20180225
  15. ESOMEPRAZOLE SODIUM. [Concomitant]
     Active Substance: ESOMEPRAZOLE SODIUM
     Dosage: 20 MG,QD
     Route: 048
  16. DUOPLAVIN [Concomitant]
     Active Substance: ASPIRIN\CLOPIDOGREL
     Dosage: UNK UNK,UNK
     Route: 048
  17. BISOPROLOL FUMARATE. [Concomitant]
     Active Substance: BISOPROLOL FUMARATE
     Dosage: 5 MG,QD
     Route: 048
  18. GLYCERYL TRINITRATE [Concomitant]
     Active Substance: NITROGLYCERIN
     Dosage: UNK UNK,UNK
     Route: 042
  19. LASILIX [FUROSEMIDE] [Concomitant]
     Active Substance: FUROSEMIDE
     Dosage: 25 MG,QD
     Route: 065

REACTIONS (2)
  - Toxic epidermal necrolysis [Fatal]
  - Stevens-Johnson syndrome [Fatal]

NARRATIVE: CASE EVENT DATE: 20180224
